FAERS Safety Report 7968921-0 (Version None)
Quarter: 2011Q4

REPORT INFORMATION
  Report Type: 
  Country: None (occurrence: None)
  Receive Date: 20111209
  Receipt Date: 20111208
  Transmission Date: 20120403
  Serious: Yes (Other)
  Sender: FDA-Public Use
  Company Number: BR-BAYER-2011-108740

PATIENT
  Sex: Male

DRUGS (1)
  1. ULTRAVIST 150 [Suspect]
     Indication: COMPUTERISED TOMOGRAM ABDOMEN
     Dosage: UNK
     Route: 042
     Dates: start: 20111027, end: 20111027

REACTIONS (6)
  - LUNG DISORDER [None]
  - ABSCESS LIMB [None]
  - BLOOD MERCURY ABNORMAL [None]
  - JOINT SWELLING [None]
  - METAL POISONING [None]
  - URINE MERCURY [None]
